FAERS Safety Report 6840674-9 (Version None)
Quarter: 2010Q3

REPORT INFORMATION
  Report Type: 
  Country: None (occurrence: None)
  Receive Date: 20100714
  Receipt Date: 20100630
  Transmission Date: 20110219
  Serious: Yes (Other)
  Sender: FDA-Public Use
  Company Number: US-ROCHE-714556

PATIENT
  Sex: Male
  Weight: 101.2 kg

DRUGS (7)
  1. BEVACIZUMAB [Suspect]
     Indication: PROSTATE CANCER
     Route: 042
     Dates: start: 20100603
  2. NORVASC [Concomitant]
     Route: 048
     Dates: start: 20091223
  3. TYLENOL [Concomitant]
     Indication: ARTHRITIS
     Route: 048
     Dates: start: 20100105
  4. CLARITIN [Concomitant]
     Route: 048
     Dates: start: 20100109, end: 20100408
  5. COLACE [Concomitant]
     Route: 048
  6. LUPRON [Concomitant]
     Dosage: LAST DOSE: 13 MAY 2010
  7. CORTISOL [Concomitant]
     Dosage: CORTISOL SHOT IN RIGHT FOOT
     Dates: start: 20091112

REACTIONS (2)
  - BLOOD PRESSURE INCREASED [None]
  - VENTRICULAR EXTRASYSTOLES [None]
